FAERS Safety Report 8290957-3 (Version None)
Quarter: 2012Q2

REPORT INFORMATION
  Report Type: 
  Country: None (occurrence: None)
  Receive Date: 20120417
  Receipt Date: 20120130
  Transmission Date: 20120825
  Serious: No
  Sender: FDA-Public Use
  Company Number: US-ASTRAZENECA-2012SE06741

PATIENT
  Sex: Female

DRUGS (4)
  1. NEXIUM [Suspect]
     Indication: GASTRITIS
     Route: 048
  2. PRILOSEC [Concomitant]
  3. NEXIUM [Suspect]
     Indication: GASTROOESOPHAGEAL REFLUX DISEASE
     Route: 048
  4. NEXIUM [Suspect]
     Indication: HERNIA
     Route: 048

REACTIONS (7)
  - REGURGITATION [None]
  - OFF LABEL USE [None]
  - HEARING IMPAIRED [None]
  - DYSPEPSIA [None]
  - DRUG DOSE OMISSION [None]
  - BENIGN NEOPLASM [None]
  - VOMITING [None]
